FAERS Safety Report 9108333 (Version 1)
Quarter: 2013Q1

REPORT INFORMATION
  Report Type: Spontaneous
  Country: CA (occurrence: CA)
  Receive Date: 20130222
  Receipt Date: 20130222
  Transmission Date: 20140127
  Serious: Yes (Hospitalization)
  Sender: FDA-Public Use
  Company Number: CA-ALLERGAN-1302698US

PATIENT
  Age: 88 Year
  Sex: Male

DRUGS (5)
  1. TROSPIUM CHLORIDE [Suspect]
     Indication: PRODUCT USED FOR UNKNOWN INDICATION
     Dosage: 20 MG, BID
  2. COMTAN [Concomitant]
  3. LEVODOPA-CARBIDOPA [Concomitant]
  4. TAMSULOSIN [Concomitant]
  5. TERAZOSIN [Concomitant]

REACTIONS (1)
  - Dysuria [Unknown]
